FAERS Safety Report 23106310 (Version 1)
Quarter: 2023Q4

REPORT INFORMATION
  Report Type: Spontaneous
  Country: CA (occurrence: CA)
  Receive Date: 20231025
  Receipt Date: 20231025
  Transmission Date: 20240110
  Serious: Yes (Other)
  Sender: FDA-Public Use
  Company Number: CA-FreseniusKabi-FK202316603

PATIENT
  Age: 3 Month
  Sex: Male

DRUGS (9)
  1. FLUDARABINE PHOSPHATE [Suspect]
     Active Substance: FLUDARABINE PHOSPHATE
     Indication: Brain sarcoma
     Route: 065
  2. ETOPOSIDE [Suspect]
     Active Substance: ETOPOSIDE
     Indication: Chloroma
     Dosage: DOSAGE FORM: NOT SPECIFIED
     Route: 065
  3. ASPARAGINASE [Suspect]
     Active Substance: ASPARAGINASE
     Indication: Chloroma
     Route: 030
  4. DAUNORUBICIN [Suspect]
     Active Substance: DAUNORUBICIN
     Indication: Chloroma
     Route: 065
  5. HYDROCORTISONE [Suspect]
     Active Substance: HYDROCORTISONE
     Indication: Brain sarcoma
     Route: 065
  6. CYTARABINE [Suspect]
     Active Substance: CYTARABINE
     Indication: Brain sarcoma
     Route: 037
  7. CYTARABINE [Suspect]
     Active Substance: CYTARABINE
     Indication: Chloroma
     Route: 065
  8. CYTARABINE [Suspect]
     Active Substance: CYTARABINE
     Route: 065
  9. METHOTREXATE [Suspect]
     Active Substance: METHOTREXATE
     Indication: Brain sarcoma
     Route: 065

REACTIONS (9)
  - Brain sarcoma [Unknown]
  - Cerebellar tumour [Unknown]
  - General physical health deterioration [Unknown]
  - Hydrocephalus [Unknown]
  - Infection [Unknown]
  - Leukaemia recurrent [Unknown]
  - Neoplasm progression [Unknown]
  - Pyrexia [Unknown]
  - Septic shock [Unknown]
